FAERS Safety Report 14460665 (Version 4)
Quarter: 2018Q1

REPORT INFORMATION
  Report Type: Spontaneous
  Country: US (occurrence: US)
  Receive Date: 20180130
  Receipt Date: 20180227
  Transmission Date: 20180509
  Serious: Yes (Other)
  Sender: FDA-Public Use
  Company Number: US-JNJFOC-20180131581

PATIENT
  Sex: Male
  Weight: 104.33 kg

DRUGS (3)
  1. REMICADE [Suspect]
     Active Substance: INFLIXIMAB
     Indication: PSORIATIC ARTHROPATHY
     Route: 042
     Dates: start: 201711
  2. REMICADE [Suspect]
     Active Substance: INFLIXIMAB
     Indication: PSORIATIC ARTHROPATHY
     Dosage: 10 VIALS
     Route: 042
     Dates: start: 20180116
  3. REMICADE [Suspect]
     Active Substance: INFLIXIMAB
     Indication: PSORIATIC ARTHROPATHY
     Dosage: EVERY 7-8 WEEKS, STARTED 19 YEARS AGO
     Route: 042
     Dates: end: 2016

REACTIONS (5)
  - Squamous cell carcinoma [Recovered/Resolved]
  - Drug ineffective [Unknown]
  - Product use issue [Unknown]
  - Immune system disorder [Unknown]
  - Off label use [Unknown]

NARRATIVE: CASE EVENT DATE: 2016
